FAERS Safety Report 7797780-4 (Version None)
Quarter: 2011Q4

REPORT INFORMATION
  Report Type: 
  Country: None (occurrence: None)
  Receive Date: 20111005
  Receipt Date: 20111002
  Transmission Date: 20120403
  Serious: No
  Sender: FDA-Public Use
  Company Number: US-TEVA-303694USA

PATIENT
  Sex: Female
  Weight: 57.204 kg

DRUGS (1)
  1. PLAN B ONE-STEP [Suspect]
     Indication: POST COITAL CONTRACEPTION
     Dosage: 1.5 MILLIGRAM;
     Route: 048
     Dates: start: 20110928, end: 20110928

REACTIONS (7)
  - ABDOMINAL PAIN UPPER [None]
  - PHARYNGEAL OEDEMA [None]
  - PAIN [None]
  - HYPERSENSITIVITY [None]
  - HYPERHIDROSIS [None]
  - PYREXIA [None]
  - URTICARIA [None]
